FAERS Safety Report 23111135 (Version 1)
Quarter: 2023Q4

REPORT INFORMATION
  Report Type: Spontaneous
  Country: IT (occurrence: IT)
  Receive Date: 20231026
  Receipt Date: 20231026
  Transmission Date: 20240110
  Serious: No
  Sender: FDA-Public Use
  Company Number: IT-JAZZ-2021-IT-004079

PATIENT
  Age: 64 Year
  Sex: Male

DRUGS (2)
  1. DEFITELIO [Suspect]
     Active Substance: DEFIBROTIDE SODIUM
     Indication: Thrombotic microangiopathy
     Dosage: 6.25 MILLIGRAM/KILOGRAM/ Q6H
     Route: 042
  2. DEFITELIO [Suspect]
     Active Substance: DEFIBROTIDE SODIUM
     Indication: Pneumonitis

REACTIONS (1)
  - Off label use [Unknown]
